FAERS Safety Report 19978770 (Version 2)
Quarter: 2021Q4

REPORT INFORMATION
  Report Type: Spontaneous
  Country: BE (occurrence: BE)
  Receive Date: 20211020
  Receipt Date: 20211021
  Transmission Date: 20220303
  Serious: Yes (Congenital Anomaly)
  Sender: FDA-Public Use
  Company Number: BE-ABBVIE-21K-013-4119373-00

PATIENT

DRUGS (2)
  1. VALPROIC ACID [Suspect]
     Active Substance: VALPROIC ACID
     Indication: Maternal exposure timing unspecified
     Route: 064
  2. ASPIRIN [Suspect]
     Active Substance: ASPIRIN
     Indication: Maternal exposure timing unspecified
     Route: 064

REACTIONS (3)
  - Teratogenicity [Unknown]
  - Foetal disorder [Unknown]
  - Foetal exposure during pregnancy [Unknown]
